FAERS Safety Report 6529701-6 (Version None)
Quarter: 2010Q1

REPORT INFORMATION
  Report Type: 
  Country: None (occurrence: None)
  Receive Date: 20100107
  Receipt Date: 20091228
  Transmission Date: 20100710
  Serious: Yes (Other)
  Sender: FDA-Public Use
  Company Number: US-KINGPHARMUSA00001-K200901622

PATIENT
  Sex: Female

DRUGS (1)
  1. ALTACE [Suspect]
     Dosage: UNK

REACTIONS (4)
  - COUGH [None]
  - POLYP [None]
  - THROAT IRRITATION [None]
  - VOCAL CORD POLYP [None]
